FAERS Safety Report 15903946 (Version 1)
Quarter: 2019Q1

REPORT INFORMATION
  Report Type: Spontaneous
  Country: DE (occurrence: DE)
  Receive Date: 20190204
  Receipt Date: 20190204
  Transmission Date: 20190417
  Serious: Yes (Hospitalization)
  Sender: FDA-Public Use
  Company Number: DE-ACCORD-105175

PATIENT
  Age: 86 Year
  Sex: Male
  Weight: 102 kg

DRUGS (8)
  1. FUROSEMIDE. [Concomitant]
     Active Substance: FUROSEMIDE
     Dosage: 40 MG, 1-0.5-0-0, TABLETS
     Route: 048
  2. RAMIPRIL. [Concomitant]
     Active Substance: RAMIPRIL
     Dosage: 10 MG, 0-0-1-0, TABLETS
     Route: 048
  3. METOPROLOL. [Concomitant]
     Active Substance: METOPROLOL
     Dosage: 47.5 MG, 1-0-0-0, TABLETS
     Route: 048
  4. SIMVASTATIN. [Concomitant]
     Active Substance: SIMVASTATIN
     Dosage: 40 MG, 0-0-1-0, TABLETS
     Route: 048
  5. PANTOPRAZOLE [Interacting]
     Active Substance: PANTOPRAZOLE
     Indication: PRODUCT USED FOR UNKNOWN INDICATION
     Dosage: 40 MG, 1-0-0-0, TABLETS
     Route: 048
  6. ACETYLSALICYLIC ACID [Concomitant]
     Active Substance: ASPIRIN
     Dosage: 100 MG, 1-0-0-0, TABLETS
     Route: 048
  7. LANTUS [Concomitant]
     Active Substance: INSULIN GLARGINE
     Dosage: 20 IE, 1-0-0-0, INJECTION / INFUSION SOLUTION
     Route: 058
  8. CLOPIDOGREL [Suspect]
     Active Substance: CLOPIDOGREL BISULFATE
     Indication: PRODUCT USED FOR UNKNOWN INDICATION
     Dosage: 75 MG, 1-0-0-0, TABLETS
     Route: 048

REACTIONS (11)
  - Fatigue [Unknown]
  - Dizziness [Unknown]
  - Dysarthria [Unknown]
  - Dyspnoea [Unknown]
  - General physical health deterioration [Unknown]
  - Weight increased [Unknown]
  - Hypertension [Unknown]
  - Upper motor neurone lesion [Unknown]
  - Confusional state [Unknown]
  - Oedema peripheral [Unknown]
  - Labelled drug-drug interaction medication error [Unknown]

NARRATIVE: CASE EVENT DATE: 20161107
